FAERS Safety Report 16091283 (Version 1)
Quarter: 2019Q1

REPORT INFORMATION
  Report Type: Spontaneous
  Country: CN (occurrence: CN)
  Receive Date: 20190319
  Receipt Date: 20190319
  Transmission Date: 20190418
  Serious: Yes (Hospitalization)
  Sender: FDA-Public Use
  Company Number: CN-ASTRAZENECA-2019SE36078

PATIENT
  Age: 60 Year
  Sex: Male

DRUGS (4)
  1. TAGRISSO [Suspect]
     Active Substance: OSIMERTINIB
     Route: 048
  2. IRESSA [Suspect]
     Active Substance: GEFITINIB
     Route: 048
  3. BETALOC [Suspect]
     Active Substance: METOPROLOL TARTRATE
     Dosage: 25.0MG UNKNOWN
     Route: 048
  4. COENZYME Q10 [Concomitant]
     Active Substance: UBIDECARENONE

REACTIONS (5)
  - Drug intolerance [Recovering/Resolving]
  - Cardiac dysfunction [Unknown]
  - Palpitations [Unknown]
  - Cardiac discomfort [Recovering/Resolving]
  - Heart rate increased [Recovering/Resolving]
